FAERS Safety Report 7035771-1 (Version None)
Quarter: 2010Q4

REPORT INFORMATION
  Report Type: 
  Country: None (occurrence: None)
  Receive Date: 20101007
  Receipt Date: 20101007
  Transmission Date: 20110411
  Serious: No
  Sender: FDA-Public Use
  Company Number: None

PATIENT
  Sex: Female

DRUGS (1)
  1. ABILIFY [Suspect]
     Dosage: 10MG QHS PO
     Route: 048
     Dates: start: 20100120, end: 20101006

REACTIONS (1)
  - OEDEMA PERIPHERAL [None]
